FAERS Safety Report 5090927-2 (Version None)
Quarter: 2006Q3

REPORT INFORMATION
  Report Type: 
  Country: None (occurrence: None)
  Receive Date: 20060823
  Receipt Date: 20060811
  Transmission Date: 20061208
  Serious: Yes (Hospitalization, Other)
  Sender: FDA-Public Use
  Company Number: TPA2006A01306

PATIENT
  Age: 47 Year
  Sex: Male

DRUGS (6)
  1. ROZEREM [Suspect]
     Dosage: PER ORAL
     Route: 048
  2. METHADONE (METHADONE) (10 GIGABECQUEREL (S)) [Suspect]
     Dosage: 10 MG, 4 IN 1 D, PER ORAL
     Route: 048
  3. CYMBALTA [Suspect]
     Dosage: 60 MG, QHS, PER ORAL
     Route: 048
  4. VICODIN [Concomitant]
  5. NEURONTIN [Concomitant]
  6. ACTIG (FENTANYL) [Concomitant]

REACTIONS (14)
  - AGITATION [None]
  - CONFUSIONAL STATE [None]
  - CONVULSION [None]
  - DRUG INTERACTION [None]
  - FAECAL INCONTINENCE [None]
  - HYPERTENSION [None]
  - MENTAL STATUS CHANGES [None]
  - MUSCULOSKELETAL STIFFNESS [None]
  - PILOERECTION [None]
  - PNEUMONIA ASPIRATION [None]
  - RESPIRATORY DEPRESSION [None]
  - RESPIRATORY FAILURE [None]
  - SEROTONIN SYNDROME [None]
  - URINARY INCONTINENCE [None]
